FAERS Safety Report 13271733 (Version 1)
Quarter: 2017Q1

REPORT INFORMATION
  Report Type: Report from Study
  Country: US (occurrence: US)
  Receive Date: 20170227
  Receipt Date: 20170227
  Transmission Date: 20170428
  Serious: Yes (Hospitalization, Congenital Anomaly)
  Sender: FDA-Public Use
  Company Number: US-BIOGEN-2017BI00358877

PATIENT
  Age: 56 Year
  Sex: Male

DRUGS (3)
  1. AVONEX [Suspect]
     Active Substance: INTERFERON BETA-1A
     Route: 030
  2. AVONEX [Suspect]
     Active Substance: INTERFERON BETA-1A
     Indication: MULTIPLE SCLEROSIS
     Route: 030
     Dates: start: 201603
  3. AVONEX [Suspect]
     Active Substance: INTERFERON BETA-1A
     Route: 030
     Dates: start: 201402

REACTIONS (5)
  - Fall [Not Recovered/Not Resolved]
  - Unresponsive to stimuli [Unknown]
  - Feeling abnormal [Unknown]
  - Neoplasm malignant [Unknown]
  - Surgery [Unknown]

NARRATIVE: CASE EVENT DATE: 201702
